FAERS Safety Report 16115316 (Version 2)
Quarter: 2019Q3

REPORT INFORMATION
  Report Type: Report from Study
  Country: US (occurrence: US)
  Receive Date: 20190325
  Receipt Date: 20190704
  Transmission Date: 20191004
  Serious: No
  Sender: FDA-Public Use
  Company Number: US-009507513-1903USA010998

PATIENT
  Sex: Female

DRUGS (1)
  1. DULERA [Suspect]
     Active Substance: FORMOTEROL FUMARATE DIHYDRATE\MOMETASONE FUROATE
     Dosage: 2 PUFFS MORNING, 2 PUFFS AT NIGHT
     Route: 055

REACTIONS (4)
  - Seasonal allergy [Unknown]
  - Product dose omission [Unknown]
  - Dyspnoea [Unknown]
  - Asthma [Unknown]
